FAERS Safety Report 5330019-8 (Version None)
Quarter: 2007Q2

REPORT INFORMATION
  Report Type: 
  Country: None (occurrence: None)
  Receive Date: 20070521
  Receipt Date: 20070517
  Transmission Date: 20071010
  Serious: Yes (Other)
  Sender: FDA-Public Use
  Company Number: B0471490A

PATIENT
  Sex: Male

DRUGS (2)
  1. SERETIDE [Suspect]
     Indication: WHEEZING
     Route: 055
     Dates: start: 20070401, end: 20070511
  2. AZITHROMYCIN [Concomitant]
     Indication: DRUG USE FOR UNKNOWN INDICATION
     Route: 065

REACTIONS (4)
  - CANDIDIASIS [None]
  - MOUTH ULCERATION [None]
  - SKIN DISCOLOURATION [None]
  - TONGUE DISCOLOURATION [None]
